FAERS Safety Report 7949315-0 (Version None)
Quarter: 2011Q4

REPORT INFORMATION
  Report Type: 
  Country: None (occurrence: None)
  Receive Date: 20111130
  Receipt Date: 20111123
  Transmission Date: 20120403
  Serious: Yes (Hospitalization)
  Sender: FDA-Public Use
  Company Number: DE-GENZYME-CAMP-1001972

PATIENT
  Sex: Male
  Weight: 69.2 kg

DRUGS (10)
  1. CAMPATH [Suspect]
     Dosage: 30 MG, 3X/W
     Route: 058
     Dates: end: 20111007
  2. CLEMASTINE FUMARATE [Concomitant]
     Indication: PRODUCT USED FOR UNKNOWN INDICATION
     Dosage: UNK
     Route: 065
  3. PANTOPRAZOLE SODIUM [Concomitant]
     Indication: PRODUCT USED FOR UNKNOWN INDICATION
     Dosage: 40
     Route: 065
  4. CAMPATH [Suspect]
     Indication: CHRONIC LYMPHOCYTIC LEUKAEMIA
     Dosage: 1ST CYCLE 30 MG, 3X/W MONDAY, WEDNESDAY, FRIDAY
     Route: 058
     Dates: start: 20110627, end: 20110724
  5. COTRIM [Concomitant]
     Indication: PRODUCT USED FOR UNKNOWN INDICATION
     Dosage: UNK
     Route: 065
  6. DEXAMETHASONE [Suspect]
     Indication: CHRONIC LYMPHOCYTIC LEUKAEMIA
     Dosage: 40 MG, QD 1-4
     Route: 048
     Dates: start: 20110627
  7. DEXAMETHASONE [Suspect]
     Dosage: 40 MG, QD 15-18
     Route: 048
     Dates: end: 20111003
  8. PEGFILGRASTIM [Suspect]
     Indication: NEUTROPENIA
     Dosage: 6 MG, QD
     Route: 058
     Dates: start: 20110627, end: 20111003
  9. VALACICLOVIR [Concomitant]
     Indication: PRODUCT USED FOR UNKNOWN INDICATION
     Dosage: (1-0-1)
     Route: 065
  10. PARACETAMOL [Concomitant]
     Indication: PRODUCT USED FOR UNKNOWN INDICATION
     Dosage: UNK
     Route: 065

REACTIONS (4)
  - ATYPICAL MYCOBACTERIAL PNEUMONIA [None]
  - C-REACTIVE PROTEIN INCREASED [None]
  - PANCYTOPENIA [None]
  - INFECTION [None]
